FAERS Safety Report 5470198-5 (Version None)
Quarter: 2007Q3

REPORT INFORMATION
  Report Type: 
  Country: None (occurrence: None)
  Receive Date: 20070924
  Receipt Date: 20070918
  Transmission Date: 20080115
  Serious: Yes (Hospitalization)
  Sender: FDA-Public Use
  Company Number: 018602

PATIENT
  Age: 30 Year
  Sex: Female

DRUGS (3)
  1. DESOGESTREL AND ETHINYL ESTRADIOL [Suspect]
     Dosage: 1 TABLET, QD, ORAL
     Route: 048
     Dates: start: 20070201, end: 20070917
  2. PRILOSEC [Concomitant]
  3. ALLEGRA-D(FEXOFENADINE) [Concomitant]

REACTIONS (4)
  - ANAPHYLACTIC REACTION [None]
  - HYPERSENSITIVITY [None]
  - PHARYNGEAL OEDEMA [None]
  - URTICARIA [None]
